FAERS Safety Report 9821967 (Version 2)
Quarter: 2017Q1

REPORT INFORMATION
  Report Type: Spontaneous
  Country: CA (occurrence: CA)
  Receive Date: 20140116
  Receipt Date: 20170308
  Transmission Date: 20170429
  Serious: Yes (Life-Threatening, Other)
  Sender: FDA-Public Use
  Company Number: CA-MERCK-1401CAN004820

PATIENT
  Age: 64 Year
  Sex: Male
  Weight: 72.56 kg

DRUGS (9)
  1. COVERSYL (PERINDOPRIL ARGININE) [Suspect]
     Active Substance: PERINDOPRIL
     Dosage: 1 DF, QD
     Route: 048
     Dates: start: 20130403, end: 20130403
  2. LESCOL [Concomitant]
     Active Substance: FLUVASTATIN SODIUM
     Dosage: 20 MG, HS
     Route: 048
     Dates: start: 200910
  3. EZETROL [Suspect]
     Active Substance: EZETIMIBE
     Dosage: 1 DF, QD
     Route: 048
     Dates: start: 20130403, end: 20130403
  4. FINASTERIDE. [Concomitant]
     Active Substance: FINASTERIDE
     Dosage: 5 MG, HS
     Route: 048
     Dates: start: 2012
  5. CLONAZEPAM. [Concomitant]
     Active Substance: CLONAZEPAM
     Dosage: 0.25 MG, HS
     Route: 048
     Dates: start: 2007
  6. BISOPROLOL SANDOZ [Concomitant]
     Active Substance: BISOPROLOL
     Dosage: 5 MG, AM
     Route: 048
     Dates: start: 200910
  7. RIVASA [Concomitant]
     Active Substance: ASPIRIN
     Dosage: 80 MG, HS
     Route: 048
     Dates: start: 200910
  8. NIASPAN [Concomitant]
     Active Substance: NIACIN
     Dosage: 750 MG, HS
     Route: 048
     Dates: start: 200910
  9. TAMSULOSIN SANDOZ [Concomitant]
     Active Substance: TAMSULOSIN
     Dosage: 0.4 MG, HS
     Route: 048
     Dates: start: 2012

REACTIONS (5)
  - Swelling face [Recovered/Resolved]
  - Dyspnoea [Recovered/Resolved]
  - Angioedema [Recovered/Resolved]
  - Pharyngeal oedema [Recovered/Resolved]
  - Pruritus [Recovered/Resolved]
